FAERS Safety Report 4726110-7 (Version None)
Quarter: 2005Q3

REPORT INFORMATION
  Report Type: 
  Country: None (occurrence: None)
  Receive Date: 20050727
  Receipt Date: 20050412
  Transmission Date: 20060218
  Serious: Yes (Other)
  Sender: FDA-Public Use
  Company Number: PHBS2005BE05268

PATIENT
  Age: 67 Year
  Sex: Male

DRUGS (5)
  1. THALIDOMIDE [Concomitant]
     Route: 065
     Dates: start: 20040401
  2. DEXAMETHASONE [Concomitant]
     Route: 065
     Dates: start: 20040401, end: 20040901
  3. ZOMETA [Suspect]
     Dosage: UNK, UNK
     Route: 042
     Dates: start: 20030110, end: 20050530
  4. AREDIA [Suspect]
     Dosage: 90 MG, QMO
     Route: 042
     Dates: start: 20010208, end: 20021213
  5. BONEFOS [Concomitant]
     Dosage: 800 MG, BID
     Route: 065
     Dates: start: 20050627

REACTIONS (6)
  - ACTINOMYCOSIS [None]
  - HYPERTENSION [None]
  - OSTEITIS [None]
  - OSTEONECROSIS [None]
  - PAIN IN JAW [None]
  - PROTEINURIA [None]
